FAERS Safety Report 5530704-9 (Version None)
Quarter: 2007Q4

REPORT INFORMATION
  Report Type: 
  Country: None (occurrence: None)
  Receive Date: 20071128
  Receipt Date: 20071128
  Transmission Date: 20080405
  Serious: Yes (Hospitalization)
  Sender: FDA-Public Use
  Company Number: None

PATIENT
  Age: 59 Year
  Sex: Male
  Weight: 86 kg

DRUGS (14)
  1. REPAGLANIDE [Suspect]
     Dosage: 2 MG BEFORE EACH MEAL PO BEFORE 10/03/07
     Route: 048
  2. ACTOS [Concomitant]
  3. ASPIRIN [Concomitant]
  4. DITIAZEM [Concomitant]
  5. FOLIC ACID [Concomitant]
  6. GLUCOPHAGE [Concomitant]
  7. LIPITOR [Concomitant]
  8. MIRALAX [Concomitant]
  9. NASONEX [Concomitant]
  10. PRILOSEC [Concomitant]
  11. TEMAZEPAM [Concomitant]
  12. WELLBUTRIN [Concomitant]
  13. METAZADONE [Concomitant]
  14. GUAIFESIN [Concomitant]

REACTIONS (7)
  - ABDOMINAL PAIN [None]
  - BLOOD GLUCOSE DECREASED [None]
  - BLOOD GLUCOSE INCREASED [None]
  - DYSARTHRIA [None]
  - MUSCULAR WEAKNESS [None]
  - NAUSEA [None]
  - ORAL INTAKE REDUCED [None]
